FAERS Safety Report 15561692 (Version 1)
Quarter: 2018Q4

REPORT INFORMATION
  Report Type: Spontaneous
  Country: CH (occurrence: CH)
  Receive Date: 20181029
  Receipt Date: 20181029
  Transmission Date: 20190205
  Serious: Yes (Other)
  Sender: FDA-Public Use
  Company Number: CH-PFIZER INC-2018434998

PATIENT
  Age: 61 Year
  Sex: Female

DRUGS (5)
  1. FRAGMIN [Suspect]
     Active Substance: DALTEPARIN SODIUM
     Indication: EMBOLISM VENOUS
     Dosage: 10000 IU, DAILY
     Route: 058
     Dates: start: 201607, end: 20180930
  2. CIPRALEX [ESCITALOPRAM OXALATE] [Concomitant]
     Indication: PERSISTENT DEPRESSIVE DISORDER
     Dosage: UNK
     Dates: start: 201605
  3. FRAGMIN [Suspect]
     Active Substance: DALTEPARIN SODIUM
     Dosage: 12500 IU, DAILY
     Route: 058
     Dates: start: 20181001
  4. KEPPRA [Concomitant]
     Active Substance: LEVETIRACETAM
     Indication: GENERALISED TONIC-CLONIC SEIZURE
     Dosage: UNK
     Dates: start: 2016
  5. AVASTIN [Concomitant]
     Active Substance: BEVACIZUMAB
     Dosage: UNK

REACTIONS (5)
  - Liver function test abnormal [Not Recovered/Not Resolved]
  - Murphy^s sign positive [Unknown]
  - Biliary dilatation [Unknown]
  - Abdominal pain upper [Unknown]
  - Blood alkaline phosphatase increased [Unknown]

NARRATIVE: CASE EVENT DATE: 20181001
